FAERS Safety Report 26030730 (Version 1)
Quarter: 2025Q4

REPORT INFORMATION
  Report Type: Report from Study
  Country: US (occurrence: US)
  Receive Date: 20251112
  Receipt Date: 20251112
  Transmission Date: 20260117
  Serious: Yes (Other)
  Sender: JOHNSON AND JOHNSON
  Company Number: US-JNJFOC-20251147030

PATIENT
  Age: 75 Year
  Sex: Female

DRUGS (1)
  1. SPORANOX [Suspect]
     Active Substance: ITRACONAZOLE
     Indication: Barrett^s oesophagus
     Route: 048

REACTIONS (3)
  - Hypokalaemia [Unknown]
  - Dyspepsia [Unknown]
  - Off label use [Unknown]
